FAERS Safety Report 8605327 (Version 2)
Quarter: 2012Q4

REPORT INFORMATION
  Report Type: 
  Country: US (occurrence: US)
  Receive Date: 20120608
  Receipt Date: 20121019
  Transmission Date: 20130627
  Serious: Yes (Death)
  Sender: FDA-Public Use
  Company Number: US-JNJFOC-20120600649

PATIENT
  Sex: Female

DRUGS (14)
  1. REMICADE [Suspect]
     Indication: RHEUMATOID ARTHRITIS
     Dosage: dosage conflictingly reported as 300 mg; patient received approx.18 infusions till date.
     Route: 042
     Dates: start: 20040405, end: 200612
  2. METHOTREXATE [Suspect]
     Indication: PRODUCT USED FOR UNKNOWN INDICATION
     Route: 065
     Dates: end: 201103
  3. PLAQUENIL [Suspect]
     Indication: PRODUCT USED FOR UNKNOWN INDICATION
     Route: 065
     Dates: end: 201103
  4. PREDNISONE [Concomitant]
     Indication: RHEUMATOID ARTHRITIS
     Route: 048
  5. FOLTX [Concomitant]
     Route: 048
  6. OCUVIT [Concomitant]
     Route: 048
  7. FLAXSEED [Concomitant]
     Route: 048
  8. CALCIUM AND VITAMIN D [Concomitant]
     Route: 048
  9. RESTASIS [Concomitant]
     Route: 047
  10. TYLENOL [Concomitant]
     Route: 048
  11. ASA [Concomitant]
     Route: 065
  12. XALATAN [Concomitant]
     Route: 047
  13. LYRICA [Concomitant]
     Route: 048
  14. AZULFIDINE [Concomitant]
     Route: 065
     Dates: end: 201103

REACTIONS (1)
  - Squamous cell carcinoma of lung [Fatal]
